FAERS Safety Report 7798866-0 (Version None)
Quarter: 2011Q4

REPORT INFORMATION
  Report Type: 
  Country: None (occurrence: None)
  Receive Date: 20111006
  Receipt Date: 20110929
  Transmission Date: 20120403
  Serious: Yes (Hospitalization, Other)
  Sender: FDA-Public Use
  Company Number: US-JNJFOC-20100303794

PATIENT
  Sex: Female

DRUGS (10)
  1. SYNTHROID [Concomitant]
     Route: 065
  2. ASPIRIN [Concomitant]
     Route: 065
  3. LEVAQUIN [Suspect]
     Indication: PNEUMONIA
     Dosage: FOR 10 DAYS
     Route: 048
     Dates: start: 20070901
  4. LEVAQUIN [Suspect]
     Route: 042
     Dates: start: 20070905, end: 20070905
  5. VYTORIN [Concomitant]
     Route: 065
  6. ZIAC [Concomitant]
     Route: 065
  7. CENTRUM SILVER [Concomitant]
     Route: 065
  8. GINKO BILOBA [Concomitant]
     Route: 065
  9. BENICAR [Concomitant]
     Route: 065
  10. PROTONIX [Concomitant]
     Route: 065

REACTIONS (5)
  - CATARACT [None]
  - PAIN [None]
  - EMOTIONAL DISORDER [None]
  - TENDON RUPTURE [None]
  - ROTATOR CUFF SYNDROME [None]
